FAERS Safety Report 12301015 (Version 1)
Quarter: 2016Q2

REPORT INFORMATION
  Report Type: Spontaneous
  Country: US (occurrence: US)
  Receive Date: 20160425
  Receipt Date: 20160425
  Transmission Date: 20160815
  Serious: No
  Sender: FDA-Public Use
  Company Number: US-KVK-TECH, INC-1050964

PATIENT
  Age: 8 Year
  Sex: Female

DRUGS (1)
  1. DEXMETHYLPHENIDATE HYDROCHLORIDE. [Suspect]
     Active Substance: DEXMETHYLPHENIDATE HYDROCHLORIDE
     Indication: ATTENTION DEFICIT/HYPERACTIVITY DISORDER
     Route: 048
     Dates: start: 20160403, end: 20160403

REACTIONS (5)
  - Irritability [Recovered/Resolved]
  - Screaming [Recovered/Resolved]
  - Anxiety [Recovered/Resolved]
  - Crying [Recovered/Resolved]
  - Feeling abnormal [Recovered/Resolved]

NARRATIVE: CASE EVENT DATE: 20160403
